FAERS Safety Report 13452980 (Version 1)
Quarter: 2017Q2

REPORT INFORMATION
  Report Type: Spontaneous
  Country: GB (occurrence: GB)
  Receive Date: 20170418
  Receipt Date: 20170418
  Transmission Date: 20170830
  Serious: Yes (Other)
  Sender: FDA-Public Use
  Company Number: GB-TEVA-758500ACC

PATIENT
  Sex: Male

DRUGS (1)
  1. SONDATE XL [Suspect]
     Active Substance: QUETIAPINE FUMARATE
     Dosage: USED FOR 6-8 MONTHS
     Route: 065

REACTIONS (1)
  - Parkinson^s disease [Unknown]
